FAERS Safety Report 4908454-9 (Version None)
Quarter: 2006Q1

REPORT INFORMATION
  Report Type: 
  Country: None (occurrence: None)
  Receive Date: 20060210
  Receipt Date: 20050711
  Transmission Date: 20060701
  Serious: No
  Sender: FDA-Public Use
  Company Number: US-GLAXOSMITHKLINE-A0565771A

PATIENT
  Sex: Female

DRUGS (3)
  1. PAXIL CR [Suspect]
     Indication: PANIC DISORDER
     Dosage: 12.5MG PER DAY
     Route: 048
  2. PAXIL [Suspect]
     Indication: PANIC DISORDER
     Dosage: 10MG PER DAY
     Route: 048
     Dates: start: 20020101
  3. NO CONCURRENT MEDICATION [Concomitant]

REACTIONS (5)
  - DRY MOUTH [None]
  - HEART RATE INCREASED [None]
  - INITIAL INSOMNIA [None]
  - INSOMNIA [None]
  - SOMNOLENCE [None]
